FAERS Safety Report 6786774-3 (Version None)
Quarter: 2010Q2

REPORT INFORMATION
  Report Type: 
  Country: None (occurrence: None)
  Receive Date: 20100623
  Receipt Date: 20100518
  Transmission Date: 20101027
  Serious: Yes (Death)
  Sender: FDA-Public Use
  Company Number: US-ASTRAZENECA-2010SE28835

PATIENT
  Sex: Female

DRUGS (1)
  1. IRESSA [Suspect]
     Route: 048
     Dates: start: 20030801, end: 20091201

REACTIONS (3)
  - BRAIN CANCER METASTATIC [None]
  - HEADACHE [None]
  - LUNG NEOPLASM MALIGNANT [None]
